FAERS Safety Report 16544296 (Version 1)
Quarter: 2019Q3

REPORT INFORMATION
  Report Type: Spontaneous
  Country: US (occurrence: US)
  Receive Date: 20190708
  Receipt Date: 20190708
  Transmission Date: 20191004
  Serious: Yes (Hospitalization)
  Sender: FDA-Public Use
  Company Number: None

PATIENT
  Age: 77 Year
  Sex: Female

DRUGS (7)
  1. PROAIR HFA [Concomitant]
     Active Substance: ALBUTEROL SULFATE
  2. TOBRAMYCIN. [Suspect]
     Active Substance: TOBRAMYCIN
     Dosage: ?          OTHER ROUTE:INHALATION?
     Route: 055
     Dates: start: 20180504
  3. ASPRIN [Concomitant]
     Active Substance: ASPIRIN
  4. IPRATROPIUM/SOL [Concomitant]
  5. CIPROFLOXACN [Concomitant]
     Active Substance: CIPROFLOXACIN
  6. OMEPRAZOLE. [Concomitant]
     Active Substance: OMEPRAZOLE
  7. FOLIC ACID. [Concomitant]
     Active Substance: FOLIC ACID

REACTIONS (2)
  - Condition aggravated [None]
  - Bronchitis [None]

NARRATIVE: CASE EVENT DATE: 20190619
